FAERS Safety Report 16197177 (Version 15)
Quarter: 2021Q4

REPORT INFORMATION
  Report Type: Spontaneous
  Country: US (occurrence: US)
  Receive Date: 20190415
  Receipt Date: 20211117
  Transmission Date: 20220303
  Serious: Yes (Hospitalization)
  Sender: FDA-Public Use
  Company Number: US-PFIZER INC-2019157722

PATIENT
  Age: 50 Year
  Sex: Female
  Weight: 73 kg

DRUGS (11)
  1. LYRICA [Suspect]
     Active Substance: PREGABALIN
     Indication: Spinal osteoarthritis
     Dosage: 300 MG, 2X/DAY
     Route: 048
     Dates: start: 2015
  2. LYRICA [Suspect]
     Active Substance: PREGABALIN
     Indication: Back disorder
     Dosage: 200 MG, 2X/DAY
     Route: 048
     Dates: start: 2016, end: 2017
  3. LYRICA [Suspect]
     Active Substance: PREGABALIN
     Indication: Arachnoiditis
     Dosage: 400 MG, DAILY(100MG DURING THE DAY, 300MG AT NIGHT)
     Route: 048
  4. LYRICA [Suspect]
     Active Substance: PREGABALIN
     Indication: Neuropathy peripheral
     Dosage: 500 MG, DAILY (300 MG DAILY AT BED TIME, 200 MG IN THE MORNING)
     Route: 048
  5. LYRICA [Suspect]
     Active Substance: PREGABALIN
     Indication: Neuralgia
     Dosage: 100 MG, DAILY (IN THE EVENING)
     Route: 048
  6. LYRICA [Suspect]
     Active Substance: PREGABALIN
     Indication: Nerve injury
     Dosage: 300 MG, DAILY (100 MG DURING THE DAY AND 200 MG AT NIGHT)
     Route: 048
  7. LYRICA [Suspect]
     Active Substance: PREGABALIN
     Indication: Post laminectomy syndrome
     Dosage: 300 MG, 1X/DAY (BEDTIME)/TAKE CAPSULE(S) EVERY DAY BY ORAL ROUTE AT BEDTIME FOR 90 DAYS
     Route: 048
  8. LYRICA [Suspect]
     Active Substance: PREGABALIN
     Indication: Spondylolisthesis
  9. LYRICA [Suspect]
     Active Substance: PREGABALIN
     Indication: Balance disorder
  10. LYRICA [Suspect]
     Active Substance: PREGABALIN
     Indication: Intervertebral disc displacement
  11. LYRICA [Suspect]
     Active Substance: PREGABALIN
     Indication: Osteoarthritis

REACTIONS (7)
  - Product dispensing error [Unknown]
  - Incorrect dose administered [Unknown]
  - Somnolence [Not Recovered/Not Resolved]
  - Neuralgia [Not Recovered/Not Resolved]
  - Condition aggravated [Not Recovered/Not Resolved]
  - Back injury [Unknown]
  - Hypersensitivity [Unknown]

NARRATIVE: CASE EVENT DATE: 20150101
